FAERS Safety Report 18443051 (Version 3)
Quarter: 2023Q4

REPORT INFORMATION
  Report Type: Report from Study
  Country: BR (occurrence: BR)
  Receive Date: 20201029
  Receipt Date: 20231114
  Transmission Date: 20240109
  Serious: Yes (Death, Other)
  Sender: FDA-Public Use
  Company Number: BR-TAKEDA-BR202009750

PATIENT
  Sex: Male
  Weight: 35 kg

DRUGS (4)
  1. IDURSULFASE [Suspect]
     Active Substance: IDURSULFASE
     Indication: Mucopolysaccharidosis II
     Dosage: 3 DOSAGE FORM, 1/WEEK
     Route: 065
  2. IDURSULFASE [Suspect]
     Active Substance: IDURSULFASE
     Dosage: 3 DOSAGE FORM
     Route: 065
     Dates: start: 20200305
  3. IDURSULFASE [Suspect]
     Active Substance: IDURSULFASE
     Dosage: 3 DOSAGE FORM
     Route: 065
     Dates: start: 2015
  4. IDURSULFASE [Suspect]
     Active Substance: IDURSULFASE
     Dosage: UNK
     Route: 042

REACTIONS (8)
  - Sepsis [Fatal]
  - Illness [Unknown]
  - Gait disturbance [Unknown]
  - Illness [Unknown]
  - Blood pressure decreased [Unknown]
  - Hypoglycaemia [Unknown]
  - Ear pain [Unknown]
  - Product availability issue [Unknown]
